FAERS Safety Report 14516603 (Version 5)
Quarter: 2018Q2

REPORT INFORMATION
  Report Type: Spontaneous
  Country: JP (occurrence: JP)
  Receive Date: 20180212
  Receipt Date: 20180615
  Transmission Date: 20180711
  Serious: Yes (Hospitalization, Other)
  Sender: FDA-Public Use
  Company Number: JP-009507513-1802JPN000619J

PATIENT
  Age: 70 Year
  Sex: Male
  Weight: 66 kg

DRUGS (13)
  1. ALLOPURINOL. [Concomitant]
     Active Substance: ALLOPURINOL
     Indication: GOUT
     Dosage: 0.5 DF, BID
     Route: 051
     Dates: start: 20171218
  2. NEXIUM [Concomitant]
     Active Substance: ESOMEPRAZOLE MAGNESIUM
     Indication: PROPHYLAXIS AGAINST GASTROINTESTINAL ULCER
     Dosage: 1 DF, QD
     Route: 051
     Dates: start: 20171218
  3. LOXOPROFEN [Concomitant]
     Active Substance: LOXOPROFEN
     Indication: CANCER PAIN
     Dosage: 1 DF, TID
     Route: 051
     Dates: start: 20171218
  4. OPSO [Concomitant]
     Active Substance: MORPHINE HYDROCHLORIDE
     Indication: CANCER PAIN
     Dosage: UNK UNK, PRN
     Route: 051
     Dates: start: 20171218
  5. URSO [Concomitant]
     Active Substance: URSODIOL
     Indication: HEPATIC FUNCTION ABNORMAL
     Dosage: 2 G, TID
     Route: 051
     Dates: start: 20171218
  6. THYRADIN-S POWDER [Concomitant]
     Indication: HYPOTHYROIDISM
     Dosage: 50 MICROGRAM, QD
     Route: 051
     Dates: start: 20171218
  7. COLCHICINE. [Concomitant]
     Active Substance: COLCHICINE
     Indication: GOUT
     Dosage: 0.5 DF, QD
     Route: 051
     Dates: start: 20171218
  8. MAGMITT [Concomitant]
     Active Substance: MAGNESIUM OXIDE
     Indication: CONSTIPATION
     Dosage: 2 DF, BID
     Route: 051
     Dates: start: 20171218
  9. KEYTRUDA [Suspect]
     Active Substance: PEMBROLIZUMAB
     Indication: SPINDLE CELL SARCOMA
     Dosage: 200 MG, Q3W
     Route: 041
     Dates: start: 20171218, end: 20171218
  10. KEYTRUDA [Suspect]
     Active Substance: PEMBROLIZUMAB
     Dosage: 200 MG, Q3W
     Route: 041
     Dates: start: 20180308
  11. SODIUM CHLORIDE. [Concomitant]
     Active Substance: SODIUM CHLORIDE
     Indication: HYPONATRAEMIA
     Dosage: 2 G, TID
     Route: 051
     Dates: start: 20171218
  12. ZALUTIA [Concomitant]
     Active Substance: TADALAFIL
     Indication: DYSURIA
     Dosage: 0.5 DF, QD
     Route: 051
     Dates: start: 20171218
  13. BIOFERMIN [Concomitant]
     Active Substance: BACILLUS SUBTILIS\LACTOBACILLUS ACIDOPHILUS\STREPTOCOCCUS FAECAIS
     Indication: CONSTIPATION
     Dosage: 1 G, BID
     Route: 051
     Dates: start: 20171218

REACTIONS (5)
  - Muscular weakness [Recovering/Resolving]
  - Interstitial lung disease [Recovered/Resolved]
  - Malignant neoplasm progression [Unknown]
  - Hypoaesthesia [Recovering/Resolving]
  - Hypothyroidism [Recovering/Resolving]

NARRATIVE: CASE EVENT DATE: 20180115
